FAERS Safety Report 6507229 (Version 2)
Quarter: 2012Q4

REPORT INFORMATION
  Report Type: 
  Country: US (occurrence: US)
  Receive Date: 20071217
  Receipt Date: 20121030
  Transmission Date: 20130627
  Serious: No
  Sender: FDA-Public Use
  Company Number: US-ASTRAZENECA-2007UW22523

PATIENT
  Age: 72 Year
  Sex: Female
  Weight: 58.5 kg

DRUGS (4)
  1. CRESTOR [Suspect]
     Indication: BLOOD CHOLESTEROL INCREASED
     Route: 048
  2. CRESTOR [Suspect]
     Indication: BLOOD CHOLESTEROL INCREASED
     Route: 048
     Dates: start: 2006
  3. ATENOLOL [Concomitant]
     Route: 048
  4. MICARDIS [Concomitant]

REACTIONS (1)
  - High density lipoprotein decreased [Unknown]
